FAERS Safety Report 10930056 (Version 1)
Quarter: 2015Q1

REPORT INFORMATION
  Report Type: Spontaneous
  Country: US (occurrence: None)
  Receive Date: 20150318
  Receipt Date: 20150318
  Transmission Date: 20150721
  Serious: Yes (Life-Threatening, Hospitalization)
  Sender: FDA-Public Use
  Company Number: None

PATIENT
  Age: 18 Year
  Sex: Male
  Weight: 99.79 kg

DRUGS (7)
  1. LYRICA [Suspect]
     Active Substance: PREGABALIN
     Indication: NEURALGIA
     Dosage: 60 PILLS
     Route: 048
     Dates: start: 20150314, end: 20150314
  2. LYRICA [Suspect]
     Active Substance: PREGABALIN
     Dosage: 60 PILLS
     Route: 048
     Dates: start: 20150314, end: 20150314
  3. LYRICA [Suspect]
     Active Substance: PREGABALIN
     Indication: NERVE INJURY
     Dosage: 60 PILLS
     Route: 048
     Dates: start: 20150314, end: 20150314
  4. ALIGN [Concomitant]
     Active Substance: BIFIDOBACTERIUM LONGUM SUBSP. INFANTIS
  5. LISINOPRILL [Concomitant]
  6. LYRICA [Suspect]
     Active Substance: PREGABALIN
     Indication: PAIN
     Dosage: 60 PILLS
     Route: 048
     Dates: start: 20150314, end: 20150314
  7. XANAX [Concomitant]
     Active Substance: ALPRAZOLAM

REACTIONS (10)
  - Dizziness [None]
  - Vision blurred [None]
  - Anger [None]
  - Fear of death [None]
  - Somnolence [None]
  - Hypoaesthesia [None]
  - Loss of consciousness [None]
  - Feeling drunk [None]
  - Abasia [None]
  - Memory impairment [None]

NARRATIVE: CASE EVENT DATE: 20150314
